FAERS Safety Report 14723649 (Version 1)
Quarter: 2018Q1

REPORT INFORMATION
  Report Type: Spontaneous
  Country: US (occurrence: US)
  Receive Date: 20180331
  Receipt Date: 20180331
  Transmission Date: 20180509
  Serious: Yes (Hospitalization)
  Sender: FDA-Public Use
  Company Number: None

PATIENT
  Age: 3 Year
  Sex: Female
  Weight: 17.5 kg

DRUGS (16)
  1. MAGNISIUM SULFATE [Concomitant]
  2. VECURONIUM [Concomitant]
     Active Substance: VECURONIUM BROMIDE
  3. DACTINOMYCIN [Suspect]
     Active Substance: DACTINOMYCIN
     Dates: end: 20130611
  4. GCSF [Concomitant]
     Active Substance: UNSPECIFIED INGREDIENT
  5. PULMICORT TURBUHALER [Concomitant]
     Active Substance: BUDESONIDE
  6. VERSED [Concomitant]
     Active Substance: MIDAZOLAM HYDROCHLORIDE
  7. DOPOMINE [Concomitant]
  8. EPINEPHRINE. [Concomitant]
     Active Substance: EPINEPHRINE
  9. BENADRYL [Concomitant]
     Active Substance: DIPHENHYDRAMINE HYDROCHLORIDE
  10. VANCO [Concomitant]
     Active Substance: VANCOMYCIN
  11. CEFEPIME [Concomitant]
     Active Substance: CEFEPIME HYDROCHLORIDE
  12. FENTANYL. [Concomitant]
     Active Substance: FENTANYL
  13. PROTONIX [Concomitant]
     Active Substance: PANTOPRAZOLE SODIUM
  14. DOXORUBICIN HYDROCHLORIDE. [Suspect]
     Active Substance: DOXORUBICIN HYDROCHLORIDE
     Dates: end: 20130702
  15. VINCRISTINE SULFATE. [Suspect]
     Active Substance: VINCRISTINE SULFATE
     Dates: end: 20130716
  16. ALBUTEROL. [Concomitant]
     Active Substance: ALBUTEROL

REACTIONS (15)
  - Febrile convulsion [None]
  - Blood culture positive [None]
  - Diarrhoea [None]
  - Vomiting [None]
  - Febrile neutropenia [None]
  - Culture urine positive [None]
  - Septic shock [None]
  - Activated partial thromboplastin time prolonged [None]
  - Tremor [None]
  - Anal incontinence [None]
  - Disseminated intravascular coagulation [None]
  - International normalised ratio increased [None]
  - Bacterial infection [None]
  - Hypotension [None]
  - Tachycardia [None]

NARRATIVE: CASE EVENT DATE: 20130717
